FAERS Safety Report 7400601-2 (Version None)
Quarter: 2011Q2

REPORT INFORMATION
  Report Type: 
  Country: None (occurrence: None)
  Receive Date: 20110407
  Receipt Date: 20110406
  Transmission Date: 20111010
  Serious: Yes (Other)
  Sender: FDA-Public Use
  Company Number: A0921637A

PATIENT
  Age: 64 Year
  Sex: Female

DRUGS (2)
  1. POLYPHARMACY [Concomitant]
  2. ALLI [Suspect]
     Indication: WEIGHT LOSS DIET
     Route: 048

REACTIONS (1)
  - HEPATIC ENZYME INCREASED [None]
